FAERS Safety Report 6205752-6 (Version None)
Quarter: 2009Q2

REPORT INFORMATION
  Report Type: 
  Country: None (occurrence: None)
  Receive Date: 20090527
  Receipt Date: 20090423
  Transmission Date: 20091009
  Serious: No
  Sender: FDA-Public Use
  Company Number: US-ABBOTT-09P-163-0569707-00

PATIENT
  Sex: Female
  Weight: 84.898 kg

DRUGS (7)
  1. SIMCOR [Suspect]
     Indication: BLOOD CHOLESTEROL INCREASED
     Dosage: 500/20MG DAILY
     Dates: start: 20090301
  2. HYZAAR [Concomitant]
     Indication: HYPERTENSION
     Dosage: 50/12.5MG
     Route: 048
  3. NEURONTIN [Concomitant]
     Indication: MUSCLE SPASMS
  4. ALLOPURINOL [Concomitant]
     Indication: GOUT
  5. INSULIN [Concomitant]
     Indication: DIABETES MELLITUS
  6. MULTIPLE VITAMINS [Concomitant]
     Indication: ROUTINE HEALTH MAINTENANCE
  7. LANTUS [Concomitant]
     Indication: DIABETES MELLITUS

REACTIONS (4)
  - ARTHRALGIA [None]
  - FOOT FRACTURE [None]
  - JOINT LOCK [None]
  - JOINT SPRAIN [None]
